FAERS Safety Report 15853311 (Version 1)
Quarter: 2018Q4

REPORT INFORMATION
  Report Type: Spontaneous
  Country: US (occurrence: US)
  Receive Date: 20181228
  Receipt Date: 20181228
  Transmission Date: 20190205
  Serious: No
  Sender: FDA-Public Use
  Company Number: None

PATIENT
  Age: 70 Year
  Sex: Male
  Weight: 107.95 kg

DRUGS (12)
  1. ALAWAY EYE DROPS [Concomitant]
  2. LATANOPROST OPHTHALMIC SOLUTION [Suspect]
     Active Substance: LATANOPROST
     Indication: GLAUCOMA
     Dosage: ?          OTHER STRENGTH:0.005%/50??;QUANTITY:1 DROP;OTHER FREQUENCY:EACH EYE AT BEDTIM;OTHER ROUTE:1 DROP IN EYE?
     Dates: start: 20020201
  3. LASIX [Concomitant]
     Active Substance: FUROSEMIDE
  4. NOVASC [Concomitant]
  5. SLEEP AP ??? [Concomitant]
  6. XALTAN [Concomitant]
  7. VALSART/HCT [Concomitant]
  8. FLUTICASONE. [Concomitant]
     Active Substance: FLUTICASONE
  9. MONTELUKAST SODIUM. [Concomitant]
     Active Substance: MONTELUKAST SODIUM
  10. PROAIR HFA [Concomitant]
     Active Substance: ALBUTEROL SULFATE
  11. CENTRUM SILVER [Concomitant]
     Active Substance: MINERALS\VITAMINS
  12. FISH OIL [Concomitant]
     Active Substance: FISH OIL

REACTIONS (2)
  - Product packaging quantity issue [None]
  - Product substitution issue [None]

NARRATIVE: CASE EVENT DATE: 20180102
